FAERS Safety Report 9810790 (Version 1)
Quarter: 2014Q1

REPORT INFORMATION
  Report Type: Spontaneous
  Country: US (occurrence: US)
  Receive Date: 20140110
  Receipt Date: 20140110
  Transmission Date: 20141002
  Serious: Yes (Hospitalization)
  Sender: FDA-Public Use
  Company Number: US-SANOFI-AVENTIS-2012SA092831

PATIENT
  Age: 63 Year
  Sex: Male
  Weight: 127.38 kg

DRUGS (9)
  1. PLAVIX [Suspect]
     Indication: STENT PLACEMENT
     Route: 065
  2. ASPIRIN [Suspect]
     Indication: STENT PLACEMENT
     Route: 065
  3. STUDY MEDICATION NOT GIVEN [Suspect]
  4. WARFARIN SODIUM [Suspect]
     Indication: ATRIAL FIBRILLATION
     Route: 065
  5. FISH OIL [Concomitant]
     Route: 048
     Dates: start: 20100812
  6. OMEPRAZOLE [Concomitant]
     Route: 048
     Dates: start: 20110915
  7. GLIPIZIDE [Concomitant]
     Route: 048
     Dates: start: 20100812
  8. METFORMIN [Concomitant]
     Route: 048
     Dates: start: 20100812
  9. LANTUS [Concomitant]
     Route: 058
     Dates: start: 20100811, end: 20111016

REACTIONS (1)
  - Gastric ulcer haemorrhage [Recovered/Resolved]
